FAERS Safety Report 9345877 (Version 2)
Quarter: 2013Q2

REPORT INFORMATION
  Report Type: Spontaneous
  Country: VE (occurrence: VE)
  Receive Date: 20130613
  Receipt Date: 20130618
  Transmission Date: 20140414
  Serious: No
  Sender: FDA-Public Use
  Company Number: VE-PFIZER INC-2013174906

PATIENT
  Age: 43 Year
  Sex: Female

DRUGS (4)
  1. LYRICA [Suspect]
     Indication: FALL
     Dosage: 150 MG
  2. LYRICA [Suspect]
     Indication: BACK INJURY
  3. LYRICA [Suspect]
     Indication: FIBROSIS
  4. LYRICA [Suspect]
     Indication: HERNIA

REACTIONS (1)
  - Off label use [Unknown]
